FAERS Safety Report 13355175 (Version 1)
Quarter: 2017Q1

REPORT INFORMATION
  Report Type: Spontaneous
  Country: US (occurrence: US)
  Receive Date: 20170321
  Receipt Date: 20170321
  Transmission Date: 20170429
  Serious: No
  Sender: FDA-Public Use
  Company Number: US-BAUSCH-BL-2016-004972

PATIENT
  Sex: Female

DRUGS (5)
  1. TRETINOIN CREAM 0.05% [Suspect]
     Active Substance: TRETINOIN
     Indication: SKIN DISORDER
     Route: 061
  2. CERAVE SUNSCREEN BROAD SPECTRUM SPF 50 FACE [Suspect]
     Active Substance: TITANIUM DIOXIDE\ZINC OXIDE
     Indication: PRODUCT USED FOR UNKNOWN INDICATION
     Route: 061
  3. CERAVE HYDRATING CLEANSER [Suspect]
     Active Substance: SALICYLIC ACID
     Indication: PRODUCT USED FOR UNKNOWN INDICATION
     Route: 061
  4. CERAVE FACIAL MOISTURIZING LOTION PM [Suspect]
     Active Substance: COSMETICS
     Indication: PRODUCT USED FOR UNKNOWN INDICATION
     Route: 061
  5. CERAVE AM FACIAL MOISTURIZING SPF [Suspect]
     Active Substance: HOMOSALATE\OCTINOXATE\OCTOCRYLENE\ZINC OXIDE
     Indication: PRODUCT USED FOR UNKNOWN INDICATION
     Route: 061
     Dates: start: 2015

REACTIONS (3)
  - Dry skin [Not Recovered/Not Resolved]
  - Off label use [Unknown]
  - Product quality issue [Unknown]
